FAERS Safety Report 13586543 (Version 1)
Quarter: 2017Q2

REPORT INFORMATION
  Report Type: Spontaneous
  Country: JP (occurrence: JP)
  Receive Date: 20170526
  Receipt Date: 20170526
  Transmission Date: 20170830
  Serious: Yes (Other)
  Sender: FDA-Public Use
  Company Number: JP-PFIZER INC-2016592510

PATIENT
  Age: 72 Year
  Sex: Female

DRUGS (2)
  1. BEVACIZUMAB [Suspect]
     Active Substance: BEVACIZUMAB
     Indication: BREAST CANCER
     Dosage: 10 MG/M2, 2X/WEEK
  2. PACLITAXEL. [Suspect]
     Active Substance: PACLITAXEL
     Indication: BREAST CANCER
     Dosage: 80 MG/M2, 2X/WEEK

REACTIONS (6)
  - Nausea [Unknown]
  - Product use issue [Unknown]
  - Proteinuria [Unknown]
  - Neuropathy peripheral [Recovering/Resolving]
  - Neutrophil count decreased [Unknown]
  - Alopecia [Unknown]
